FAERS Safety Report 21723475 (Version 1)
Quarter: 2022Q4

REPORT INFORMATION
  Report Type: Spontaneous
  Country: US (occurrence: None)
  Receive Date: 20221213
  Receipt Date: 20221213
  Transmission Date: 20230113
  Serious: Yes (Other)
  Sender: FDA-Public Use
  Company Number: None

PATIENT
  Age: 69 Year
  Sex: Male
  Weight: 103.5 kg

DRUGS (1)
  1. WIXELA INHUB [Suspect]
     Active Substance: FLUTICASONE PROPIONATE\SALMETEROL XINAFOATE
     Indication: Chronic obstructive pulmonary disease
     Dosage: OTHER QUANTITY : 1 PUFF(S);?FREQUENCY : TWICE A DAY;?
     Route: 048
     Dates: start: 20221129, end: 20221212

REACTIONS (7)
  - Throat irritation [None]
  - Cough [None]
  - Pulmonary pain [None]
  - Dyspnoea [None]
  - Productive cough [None]
  - Dysphonia [None]
  - Palpitations [None]

NARRATIVE: CASE EVENT DATE: 20221212
